FAERS Safety Report 6456741-8 (Version None)
Quarter: 2009Q4

REPORT INFORMATION
  Report Type: 
  Country: None (occurrence: None)
  Receive Date: 20091125
  Receipt Date: 20091120
  Transmission Date: 20100525
  Serious: Yes (Hospitalization)
  Sender: FDA-Public Use
  Company Number: JP-EISAI INC.-E2090-00874-SPO-JP

PATIENT
  Age: 53 Year
  Sex: Male

DRUGS (4)
  1. EXCEGRAN [Suspect]
     Route: 048
     Dates: start: 20091106, end: 20091108
  2. INSULIN [Concomitant]
     Dosage: 52 UNITS
  3. LEVEMIR [Concomitant]
     Indication: DIABETES MELLITUS
     Route: 058
  4. NOVORAPID [Concomitant]
     Indication: DIABETES MELLITUS
     Route: 058
     Dates: start: 19980101

REACTIONS (1)
  - HYPERGLYCAEMIA [None]
